FAERS Safety Report 24949883 (Version 3)
Quarter: 2025Q3

REPORT INFORMATION
  Report Type: Report from Study
  Country: US (occurrence: US)
  Receive Date: 20250210
  Receipt Date: 20250730
  Transmission Date: 20251021
  Serious: Yes (Other)
  Sender: TAKEDA
  Company Number: US-TAKEDA-2025TUS012849

PATIENT
  Sex: Male

DRUGS (2)
  1. FRUQUINTINIB [Suspect]
     Active Substance: FRUQUINTINIB
     Indication: Rectal cancer
  2. FRUQUINTINIB [Suspect]
     Active Substance: FRUQUINTINIB

REACTIONS (6)
  - Rectal cancer [Not Recovered/Not Resolved]
  - Neuropathy peripheral [Not Recovered/Not Resolved]
  - Fatigue [Recovered/Resolved]
  - Decreased appetite [Not Recovered/Not Resolved]
  - Blood pressure increased [Recovered/Resolved]
  - Asthenia [Recovered/Resolved]
